FAERS Safety Report 6882896-7 (Version None)
Quarter: 2010Q3

REPORT INFORMATION
  Report Type: 
  Country: None (occurrence: None)
  Receive Date: 20100727
  Receipt Date: 20100412
  Transmission Date: 20110219
  Serious: Yes (Other)
  Sender: FDA-Public Use
  Company Number: 2009SP009478

PATIENT
  Age: 1 Year
  Sex: Female

DRUGS (1)
  1. COPPERTONE WATERBABIES SPECTRA SPF 50 (HOMOSALATE/OCTINOXATE/OCTISALAT [Suspect]
     Indication: PRODUCT USED FOR UNKNOWN INDICATION
     Dosage: TOP
     Route: 061
     Dates: start: 20090503

REACTIONS (4)
  - CHEMICAL BURN OF SKIN [None]
  - EYE SWELLING [None]
  - RASH [None]
  - SWELLING FACE [None]
